FAERS Safety Report 10361857 (Version 2)
Quarter: 2018Q3

REPORT INFORMATION
  Report Type: Spontaneous
  Country: JP (occurrence: JP)
  Receive Date: 20140805
  Receipt Date: 20180705
  Transmission Date: 20181010
  Serious: Yes (Death)
  Sender: FDA-Public Use
  Company Number: PHHY2006JP010296

PATIENT
  Age: 81 Year
  Sex: Male
  Weight: 48 kg

DRUGS (1)
  1. GLIVEC [Suspect]
     Active Substance: IMATINIB MESYLATE
     Indication: CHRONIC MYELOID LEUKAEMIA
     Dosage: 300 MG, (300MG TO 200MG)
     Route: 065

REACTIONS (2)
  - Face oedema [Unknown]
  - Pneumonia [Fatal]
